FAERS Safety Report 5741349-X (Version None)
Quarter: 2008Q2

REPORT INFORMATION
  Report Type: 
  Country: None (occurrence: None)
  Receive Date: 20080513
  Receipt Date: 20080428
  Transmission Date: 20081010
  Serious: Yes (Other)
  Sender: FDA-Public Use
  Company Number: 2008PL000056

PATIENT
  Age: 17 Year
  Sex: Male

DRUGS (3)
  1. AZATHIOPRINE [Suspect]
     Indication: IMMUNOSUPPRESSANT DRUG THERAPY
     Dosage: 2  MG/KG ;QD;PO
     Route: 048
  2. PREDNISOLONE [Concomitant]
  3. TACROLIMUS [Concomitant]

REACTIONS (6)
  - B-CELL LYMPHOMA [None]
  - BLOOD CREATININE INCREASED [None]
  - BLOOD UREA INCREASED [None]
  - CALCULUS URINARY [None]
  - RENAL CYST [None]
  - TUMOUR NECROSIS [None]
